FAERS Safety Report 15065127 (Version 2)
Quarter: 2018Q4

REPORT INFORMATION
  Report Type: Spontaneous
  Country: US (occurrence: US)
  Receive Date: 20180626
  Receipt Date: 20181024
  Transmission Date: 20190204
  Serious: No
  Sender: FDA-Public Use
  Company Number: US-ASTRAZENECA-2018SE80596

PATIENT
  Age: 858 Month
  Sex: Female
  Weight: 51.7 kg

DRUGS (17)
  1. TIROSINT [Concomitant]
     Active Substance: LEVOTHYROXINE SODIUM
  2. ASPIRIN. [Concomitant]
     Active Substance: ASPIRIN
  3. XOPENEX HFA [Concomitant]
     Active Substance: LEVALBUTEROL TARTRATE
  4. COMBIVENT RESPIMAT [Concomitant]
     Active Substance: ALBUTEROL SULFATE\IPRATROPIUM BROMIDE
  5. ADVAIR DISKUS [Concomitant]
     Active Substance: FLUTICASONE PROPIONATE\SALMETEROL XINAFOATE
  6. PREMARIN [Concomitant]
     Active Substance: ESTROGENS, CONJUGATED
  7. ALPRAZOLAM. [Concomitant]
     Active Substance: ALPRAZOLAM
  8. MULTIVITAMINS [Concomitant]
     Active Substance: VITAMINS
  9. TYLENOL [Concomitant]
     Active Substance: ACETAMINOPHEN
  10. PEPTO-BISMOL [Concomitant]
     Active Substance: BISMUTH SUBSALICYLATE
  11. AVASTIN [Concomitant]
     Active Substance: BEVACIZUMAB
  12. OXYGEN. [Concomitant]
     Active Substance: OXYGEN
  13. IPRATROPIUM [Concomitant]
     Active Substance: IPRATROPIUM
  14. BEVESPI AEROSPHERE [Suspect]
     Active Substance: FORMOTEROL FUMARATE\GLYCOPYRROLATE
     Indication: CHRONIC OBSTRUCTIVE PULMONARY DISEASE
     Dosage: 9 MCG-4.8, 2 PUFFS TWICE A DAY
     Route: 055
     Dates: start: 20180611, end: 20180617
  15. ADVIL [Concomitant]
     Active Substance: IBUPROFEN
  16. MOMETASONE [Concomitant]
     Active Substance: MOMETASONE
  17. LEVALBUTEROL. [Concomitant]
     Active Substance: LEVALBUTEROL

REACTIONS (4)
  - Muscle strain [Unknown]
  - Headache [Recovered/Resolved]
  - Drug ineffective [Unknown]
  - Dizziness [Unknown]

NARRATIVE: CASE EVENT DATE: 201806
